FAERS Safety Report 20933853 (Version 4)
Quarter: 2022Q4

REPORT INFORMATION
  Report Type: Spontaneous
  Country: HU (occurrence: HU)
  Receive Date: 20220608
  Receipt Date: 20221007
  Transmission Date: 20230112
  Serious: Yes (Other)
  Sender: FDA-Public Use
  Company Number: HU-NOVARTISPH-NVSC2022HU130769

PATIENT
  Age: 57 Year
  Sex: Female

DRUGS (9)
  1. RIBOCICLIB [Suspect]
     Active Substance: RIBOCICLIB
     Indication: Invasive breast carcinoma
     Dosage: 600 MG, CYCLIC
     Route: 065
     Dates: start: 202101
  2. RIBOCICLIB [Suspect]
     Active Substance: RIBOCICLIB
     Indication: Breast cancer stage III
     Dosage: 400 MG
     Route: 065
  3. RIBOCICLIB [Suspect]
     Active Substance: RIBOCICLIB
     Indication: Hormone receptor positive HER2 negative breast cancer
  4. LETROZOLE [Concomitant]
     Active Substance: LETROZOLE
     Indication: Invasive breast carcinoma
     Dosage: UNK UNK, CYCLIC
     Route: 065
     Dates: start: 202101
  5. LETROZOLE [Concomitant]
     Active Substance: LETROZOLE
     Indication: Breast cancer stage III
  6. LETROZOLE [Concomitant]
     Active Substance: LETROZOLE
     Indication: Hormone receptor positive HER2 negative breast cancer
  7. DENOSUMAB [Concomitant]
     Active Substance: DENOSUMAB
     Indication: Invasive breast carcinoma
     Dosage: UNK UNK, CYCLIC
     Route: 065
     Dates: start: 202101
  8. DENOSUMAB [Concomitant]
     Active Substance: DENOSUMAB
     Indication: Breast cancer stage III
  9. DENOSUMAB [Concomitant]
     Active Substance: DENOSUMAB
     Indication: Hormone receptor positive HER2 negative breast cancer

REACTIONS (2)
  - Electrocardiogram QT prolonged [Recovered/Resolved]
  - Hepatic enzyme increased [Unknown]

NARRATIVE: CASE EVENT DATE: 20210101
